FAERS Safety Report 22308326 (Version 1)
Quarter: 2023Q2

REPORT INFORMATION
  Report Type: Spontaneous
  Country: US (occurrence: None)
  Receive Date: 20230511
  Receipt Date: 20230511
  Transmission Date: 20230722
  Serious: No
  Sender: FDA-Public Use
  Company Number: US-ROCHE-3232647

PATIENT
  Sex: Male
  Weight: 122.58 kg

DRUGS (5)
  1. OCREVUS [Suspect]
     Active Substance: OCRELIZUMAB
     Indication: Primary progressive multiple sclerosis
     Route: 042
     Dates: start: 2020
  2. ATORVASTATIN [Concomitant]
     Active Substance: ATORVASTATIN
     Indication: Blood cholesterol
  3. FINASTERIDE [Concomitant]
     Active Substance: FINASTERIDE
  4. DULOXETINE [Concomitant]
     Active Substance: DULOXETINE
  5. PREGABALIN [Concomitant]
     Active Substance: PREGABALIN
     Indication: Pain

REACTIONS (2)
  - Cataract [Not Recovered/Not Resolved]
  - Drug ineffective [Unknown]

NARRATIVE: CASE EVENT DATE: 20200101
